FAERS Safety Report 6084581-0 (Version None)
Quarter: 2009Q1

REPORT INFORMATION
  Report Type: 
  Country: None (occurrence: None)
  Receive Date: 20090219
  Receipt Date: 20090216
  Transmission Date: 20090719
  Serious: Yes (Death)
  Sender: FDA-Public Use
  Company Number: BE-ABBOTT-09P-013-0557252-00

PATIENT
  Sex: Male
  Weight: 75 kg

DRUGS (1)
  1. LUCRIN DEPOT INJECTION [Suspect]
     Indication: PROSTATE CANCER
     Dates: start: 20060918

REACTIONS (1)
  - CEREBRAL HAEMORRHAGE [None]
